FAERS Safety Report 16031029 (Version 1)
Quarter: 2019Q1

REPORT INFORMATION
  Report Type: Report from Study
  Country: US (occurrence: US)
  Receive Date: 20190304
  Receipt Date: 20190304
  Transmission Date: 20190418
  Serious: Yes (Other)
  Sender: FDA-Public Use
  Company Number: US-PFIZER INC-2018529072

PATIENT
  Age: 56 Year
  Sex: Female

DRUGS (1)
  1. IBRANCE [Suspect]
     Active Substance: PALBOCICLIB
     Indication: BREAST CANCER FEMALE
     Dosage: 125 MG, CYCLIC (21 DAYS ON, 7 DAYS OFF/21 DAYS THEN OFF FOR 7 DAYS)
     Route: 048
     Dates: start: 20181130

REACTIONS (8)
  - Oral mucosal blistering [Unknown]
  - Paraesthesia [Recovering/Resolving]
  - Pain of skin [Recovering/Resolving]
  - Insomnia [Recovering/Resolving]
  - Therapeutic response unexpected [Unknown]
  - Hypoaesthesia [Recovering/Resolving]
  - Neuropathy peripheral [Unknown]
  - Hair growth abnormal [Unknown]

NARRATIVE: CASE EVENT DATE: 201812
